FAERS Safety Report 24616647 (Version 1)
Quarter: 2024Q4

REPORT INFORMATION
  Report Type: Spontaneous
  Country: HK (occurrence: HK)
  Receive Date: 20241114
  Receipt Date: 20241114
  Transmission Date: 20250115
  Serious: Yes (Death, Hospitalization, Other)
  Sender: IPCA
  Company Number: HK-IPCA LABORATORIES LIMITED-IPC-2024-HK-002647

PATIENT

DRUGS (2)
  1. HYDROXYCHLOROQUINE [Suspect]
     Active Substance: HYDROXYCHLOROQUINE
     Indication: Product used for unknown indication
     Dosage: 200 MILLIGRAM
     Route: 048
  2. PREDNISOLONE [Suspect]
     Active Substance: PREDNISOLONE
     Indication: Product used for unknown indication
     Dosage: UNK
     Route: 065

REACTIONS (11)
  - Cardiac arrest [Fatal]
  - Shock [Fatal]
  - Suicide attempt [Fatal]
  - Electrocardiogram QRS complex prolonged [Fatal]
  - Circulatory collapse [Fatal]
  - Cardiac contractility decreased [Fatal]
  - Tachycardia [Fatal]
  - Haemodynamic instability [Fatal]
  - General physical health deterioration [Fatal]
  - Toxicity to various agents [Fatal]
  - Overdose [Unknown]
